FAERS Safety Report 7817817-3 (Version None)
Quarter: 2011Q4

REPORT INFORMATION
  Report Type: 
  Country: None (occurrence: None)
  Receive Date: 20111017
  Receipt Date: 20111003
  Transmission Date: 20120403
  Serious: No
  Sender: FDA-Public Use
  Company Number: US-B.I. PHARMACEUTICALS,INC./RIDGEFIELD-2011-BP-23342BP

PATIENT
  Sex: Female

DRUGS (2)
  1. PROAIR HFA [Concomitant]
  2. SPIRIVA [Suspect]

REACTIONS (1)
  - DYSPNOEA [None]
